FAERS Safety Report 4607567-9 (Version None)
Quarter: 2005Q1

REPORT INFORMATION
  Report Type: 
  Country: None (occurrence: None)
  Receive Date: 20050314
  Receipt Date: 20050307
  Transmission Date: 20050727
  Serious: Yes (Other)
  Sender: FDA-Public Use
  Company Number: PHEH2005US02815

PATIENT
  Age: 71 Year
  Sex: Female

DRUGS (4)
  1. FEMARA [Suspect]
     Indication: BREAST CANCER
     Dates: start: 20021101
  2. CARDIZEM [Concomitant]
  3. XANAX [Concomitant]
  4. METAMUCIL-2 [Concomitant]

REACTIONS (5)
  - COLONIC POLYP [None]
  - COLONOSCOPY [None]
  - DIVERTICULUM INTESTINAL HAEMORRHAGIC [None]
  - DRUG INEFFECTIVE [None]
  - TONGUE DISCOLOURATION [None]
